FAERS Safety Report 4852219-3 (Version None)
Quarter: 2005Q4

REPORT INFORMATION
  Report Type: 
  Country: None (occurrence: None)
  Receive Date: 20051212
  Receipt Date: 20051212
  Transmission Date: 20060501
  Serious: Yes (Other)
  Sender: FDA-Public Use
  Company Number: None

PATIENT
  Age: 58 Year
  Sex: Female
  Weight: 55.3388 kg

DRUGS (2)
  1. SEROQUEL [Suspect]
     Indication: FIBROMYALGIA
     Dosage: 25 MG 1 X DAY
     Dates: start: 20040101, end: 20041229
  2. SEROQUEL [Suspect]
     Indication: INSOMNIA
     Dosage: 25 MG 1 X DAY
     Dates: start: 20040101, end: 20041229

REACTIONS (1)
  - DIABETES MELLITUS NON-INSULIN-DEPENDENT [None]
